FAERS Safety Report 7776681-1 (Version None)
Quarter: 2011Q3

REPORT INFORMATION
  Report Type: 
  Country: None (occurrence: None)
  Receive Date: 20110926
  Receipt Date: 20110209
  Transmission Date: 20111222
  Serious: No
  Sender: FDA-Public Use
  Company Number: US-BAYER-2011-013606

PATIENT
  Age: 58 Year
  Sex: Female

DRUGS (3)
  1. ULTRAVIST 150 [Suspect]
     Indication: COMPUTERISED TOMOGRAM
     Dosage: UNK
     Route: 048
     Dates: start: 20110902, end: 20110902
  2. ULTRAVIST 150 [Suspect]
     Indication: ABDOMINAL PAIN
     Dosage: 187 ML, ONCE
     Route: 042
     Dates: start: 20110902, end: 20110902
  3. LEVOTHYROXINE SODIUM [Concomitant]
     Indication: THYROID CANCER

REACTIONS (1)
  - NAUSEA [None]
